FAERS Safety Report 19055935 (Version 3)
Quarter: 2023Q2

REPORT INFORMATION
  Report Type: Spontaneous
  Country: US (occurrence: US)
  Receive Date: 20210324
  Receipt Date: 20230526
  Transmission Date: 20230721
  Serious: No
  Sender: FDA-Public Use
  Company Number: US-PFIZER INC-2021228603

PATIENT
  Age: 60 Year
  Sex: Male

DRUGS (1)
  1. XELJANZ XR [Suspect]
     Active Substance: TOFACITINIB CITRATE
     Dosage: 11 MG

REACTIONS (2)
  - Arthropathy [Unknown]
  - Hypoacusis [Unknown]
